FAERS Safety Report 13902289 (Version 1)
Quarter: 2017Q3

REPORT INFORMATION
  Report Type: Spontaneous
  Country: US (occurrence: US)
  Receive Date: 20170824
  Receipt Date: 20170824
  Transmission Date: 20171127
  Serious: No
  Sender: FDA-Public Use
  Company Number: US-ROCHE-762137

PATIENT
  Age: 54 Year
  Sex: Female
  Weight: 67.1 kg

DRUGS (2)
  1. TYKERB [Interacting]
     Active Substance: LAPATINIB DITOSYLATE
     Indication: BREAST CANCER
     Route: 048
  2. HERCEPTIN [Suspect]
     Active Substance: TRASTUZUMAB
     Indication: BREAST CANCER
     Dosage: LAST HERCEPTIN INFUSION ON 14 FEB 2011, DOSE FORM: INFUSION, ROUTE: IVPB
     Route: 042
     Dates: start: 201006, end: 20110214

REACTIONS (5)
  - Drug interaction [Unknown]
  - Urticaria [Recovered/Resolved]
  - Paraesthesia oral [Recovered/Resolved]
  - Erythema [Recovered/Resolved]
  - Chest discomfort [Recovered/Resolved]

NARRATIVE: CASE EVENT DATE: 20110214
